FAERS Safety Report 19907322 (Version 1)
Quarter: 2021Q3

REPORT INFORMATION
  Report Type: Spontaneous
  Country: US (occurrence: US)
  Receive Date: 20210930
  Receipt Date: 20210930
  Transmission Date: 20211014
  Serious: Yes (Other)
  Sender: FDA-Public Use
  Company Number: US-TEVA-2021-US-1957767

PATIENT
  Sex: Female

DRUGS (2)
  1. BUSPIRONE HYDROCHLORIDE TEVA [Suspect]
     Active Substance: BUSPIRONE HYDROCHLORIDE
     Indication: PRODUCT USED FOR UNKNOWN INDICATION
     Route: 065
  2. MONTELUKAST AUROBINDO [Concomitant]

REACTIONS (4)
  - Malabsorption [Unknown]
  - Adverse event [Unknown]
  - Coeliac disease [Unknown]
  - Gastrointestinal disorder [Unknown]
